FAERS Safety Report 9580303 (Version 1)
Quarter: 2013Q3

REPORT INFORMATION
  Report Type: Spontaneous
  Country: US (occurrence: None)
  Receive Date: 20130916
  Receipt Date: 20130916
  Transmission Date: 20140515
  Serious: Yes (Other)
  Sender: FDA-Public Use
  Company Number: JPI-P-029579

PATIENT
  Age: 47 Year
  Sex: Female
  Weight: 64.86 kg

DRUGS (6)
  1. XYREM [Suspect]
     Indication: CATAPLEXY
     Route: 048
     Dates: start: 2010
  2. OMEPRAZOLE [Concomitant]
  3. AMPHETAMINE, DEXTROAMPHETAMINE MIXED SALTS [Concomitant]
  4. CLONAZEPAM [Concomitant]
  5. TRAZODONE [Concomitant]
  6. BUSPIRONE [Concomitant]

REACTIONS (8)
  - Weight decreased [None]
  - Increased viscosity of nasal secretion [None]
  - Tongue discolouration [None]
  - Stress [None]
  - Dysphagia [None]
  - Hypophagia [None]
  - Eating disorder [None]
  - Anxiety [None]
